FAERS Safety Report 16910844 (Version 1)
Quarter: 2019Q4

REPORT INFORMATION
  Report Type: Spontaneous
  Country: US (occurrence: US)
  Receive Date: 20190820
  Receipt Date: 20190820
  Transmission Date: 20200122
  Serious: No
  Sender: FDA-Public Use
  Company Number: None

PATIENT
  Age: 56 Year
  Sex: Male

DRUGS (1)
  1. DOFETILIDE. [Suspect]
     Active Substance: DOFETILIDE
     Indication: VENTRICULAR TACHYCARDIA
     Route: 048
     Dates: start: 20190728, end: 20190730

REACTIONS (3)
  - Palpitations [None]
  - Chest discomfort [None]
  - Tachycardia [None]

NARRATIVE: CASE EVENT DATE: 20190730
